FAERS Safety Report 15546208 (Version 13)
Quarter: 2021Q4

REPORT INFORMATION
  Report Type: Report from Study
  Country: EC (occurrence: EC)
  Receive Date: 20181024
  Receipt Date: 20211227
  Transmission Date: 20220303
  Serious: Yes (Other)
  Sender: FDA-Public Use
  Company Number: PHHY2018EC134235

PATIENT
  Age: 69 Year
  Sex: Female
  Weight: 63.492 kg

DRUGS (3)
  1. SANDOSTATIN LAR DEPOT [Suspect]
     Active Substance: OCTREOTIDE ACETATE
     Indication: Neuroendocrine tumour
     Dosage: 20 MG, QMO (ONCE A MONTHLY)
     Route: 030
     Dates: start: 20160616, end: 20191107
  2. SANDOSTATIN LAR DEPOT [Suspect]
     Active Substance: OCTREOTIDE ACETATE
     Dosage: 20 MG, QMO (ONCE MONTHLY)
     Route: 030
     Dates: start: 20200102
  3. SANDOSTATIN LAR DEPOT [Suspect]
     Active Substance: OCTREOTIDE ACETATE
     Dosage: 20 MG, QMO
     Route: 030
     Dates: start: 20211201

REACTIONS (15)
  - Encephalopathy [Not Recovered/Not Resolved]
  - Memory impairment [Not Recovered/Not Resolved]
  - Hemiplegia [Recovered/Resolved]
  - Facial paralysis [Not Recovered/Not Resolved]
  - Aphasia [Unknown]
  - Headache [Not Recovered/Not Resolved]
  - Deafness [Not Recovered/Not Resolved]
  - Thrombosis [Unknown]
  - Gastritis [Unknown]
  - Tongue biting [Unknown]
  - Back pain [Recovering/Resolving]
  - Cyst [Unknown]
  - Breast pain [Not Recovered/Not Resolved]
  - Oesophageal pain [Recovering/Resolving]
  - Product availability issue [Unknown]

NARRATIVE: CASE EVENT DATE: 20171016
